FAERS Safety Report 4971163-4 (Version None)
Quarter: 2006Q1

REPORT INFORMATION
  Report Type: 
  Country: None (occurrence: None)
  Receive Date: 20060222
  Receipt Date: 20050721
  Transmission Date: 20060701
  Serious: Yes (Other)
  Sender: FDA-Public Use
  Company Number: HQWYE436125JUL05

PATIENT
  Age: 54 Year
  Sex: Female
  Weight: 68.1 kg

DRUGS (4)
  1. PROTONIX [Suspect]
     Dosage: 40 MG, ORAL
     Route: 048
     Dates: end: 20050101
  2. GLUCOPHAGE [Concomitant]
  3. BETAPACE [Concomitant]
  4. SYNTHROID [Concomitant]

REACTIONS (2)
  - ALANINE AMINOTRANSFERASE INCREASED [None]
  - ASPARTATE AMINOTRANSFERASE INCREASED [None]
